FAERS Safety Report 9878756 (Version 1)
Quarter: 2014Q1

REPORT INFORMATION
  Report Type: Spontaneous
  Country: US (occurrence: US)
  Receive Date: 20140206
  Receipt Date: 20140206
  Transmission Date: 20141002
  Serious: Yes (Hospitalization)
  Sender: FDA-Public Use
  Company Number: US-GLAXOSMITHKLINE-A1058509A

PATIENT
  Age: 53 Year
  Sex: Male

DRUGS (5)
  1. ADVAIR [Suspect]
     Indication: ASTHMA
     Dosage: 1PUFF TWICE PER DAY
     Dates: start: 2004
  2. BENADRYL [Suspect]
     Indication: NASOPHARYNGITIS
     Route: 065
  3. ALKA SELTZER PLUS [Suspect]
     Indication: NASOPHARYNGITIS
     Route: 065
  4. SINUS MEDICATION [Suspect]
     Indication: SINUS HEADACHE
     Route: 065
  5. SINGULAIR [Concomitant]

REACTIONS (7)
  - Chest discomfort [Recovered/Resolved]
  - Heart rate increased [Recovered/Resolved]
  - Feeling hot [Recovered/Resolved]
  - Heart rate increased [Recovered/Resolved]
  - Hypertension [Recovered/Resolved]
  - Nasopharyngitis [Recovered/Resolved]
  - Drug interaction [Recovered/Resolved]
